FAERS Safety Report 6147927-0 (Version None)
Quarter: 2009Q2

REPORT INFORMATION
  Report Type: 
  Country: None (occurrence: None)
  Receive Date: 20090408
  Receipt Date: 20090402
  Transmission Date: 20091009
  Serious: Yes (Hospitalization)
  Sender: FDA-Public Use
  Company Number: US-PFIZER INC-2009192067

PATIENT
  Sex: Male
  Weight: 78.277 kg

DRUGS (14)
  1. BLINDED *PLACEBO [Suspect]
     Indication: PROSTATE CANCER
     Dosage: 37.5 MG, 1X/DAY
     Route: 048
     Dates: start: 20090205
  2. BLINDED SUNITINIB MALATE [Suspect]
     Indication: PROSTATE CANCER
     Dosage: 37.5 MG, 1X/DAY
     Route: 048
     Dates: start: 20090205
  3. PREDNISONE [Suspect]
     Indication: PROSTATE CANCER
     Dosage: 5 MG, 2X/DAY
     Route: 048
     Dates: start: 20090205
  4. NEXIUM [Concomitant]
     Indication: DYSPEPSIA
     Dosage: 40 MG, 1X/DAY
     Route: 048
     Dates: start: 20070101
  5. METOPROLOL [Concomitant]
     Indication: VENTRICULAR EXTRASYSTOLES
     Dosage: 50 MG, 1X/DAY
     Route: 048
     Dates: start: 20030101
  6. GLIPIZIDE [Concomitant]
     Indication: DIABETES MELLITUS
     Dosage: 2.5 MG, 1X/DAY
     Route: 048
     Dates: start: 19980101
  7. TOPROL-XL [Concomitant]
     Indication: ATRIAL FIBRILLATION
     Dosage: 12.5 MG, 1X/DAY
     Route: 048
     Dates: start: 19960101
  8. AMLODIPINE [Concomitant]
     Indication: HYPERTENSION
     Dosage: 1 TABLE, 1X/DAY
     Route: 048
     Dates: start: 19960101
  9. LUNESTA [Concomitant]
     Indication: INSOMNIA
     Dosage: 2 MG, 1X/DAY
     Route: 048
     Dates: start: 20060101
  10. CELEBREX [Concomitant]
     Indication: ARTHRITIS
     Dosage: 200 MG, 1X/DAY
     Route: 048
     Dates: start: 20050101
  11. ALLEGRA [Concomitant]
     Indication: SEASONAL ALLERGY
     Dosage: 60 MG, 1X/DAY
     Route: 048
     Dates: start: 20000101
  12. ZOMETA [Concomitant]
     Indication: METASTASES TO BONE
     Dosage: 4 MG, Q3-4 WEEKS
     Route: 042
     Dates: start: 20090305
  13. ZOFRAN [Concomitant]
     Indication: NAUSEA
     Dosage: 8 MG, AS NEEDED
     Route: 048
     Dates: start: 20090207
  14. COMPAZINE [Concomitant]
     Indication: NAUSEA
     Dosage: 10 MG, AS NEEDED
     Route: 048

REACTIONS (1)
  - CEREBROVASCULAR ACCIDENT [None]
